FAERS Safety Report 5875111-4 (Version None)
Quarter: 2008Q3

REPORT INFORMATION
  Report Type: 
  Country: None (occurrence: None)
  Receive Date: 20080909
  Receipt Date: 20080903
  Transmission Date: 20090109
  Serious: Yes (Death, Hospitalization)
  Sender: FDA-Public Use
  Company Number: A0746420A

PATIENT
  Age: 79 Year
  Sex: Male
  Weight: 73 kg

DRUGS (4)
  1. SERETIDE [Suspect]
     Indication: CHRONIC OBSTRUCTIVE PULMONARY DISEASE
     Dosage: 2PUFF TWICE PER DAY
     Route: 055
     Dates: start: 20070201, end: 20080803
  2. LANSOPRAZOLE [Concomitant]
     Dates: start: 20040101, end: 20080701
  3. CAPTOPRIL [Concomitant]
     Dosage: 2TAB PER DAY
     Route: 048
     Dates: start: 20050101, end: 20080802
  4. ATROVENT [Concomitant]
     Dates: start: 20040101, end: 20080801

REACTIONS (2)
  - ADVERSE EVENT [None]
  - CARDIO-RESPIRATORY ARREST [None]
